FAERS Safety Report 6469687-6 (Version None)
Quarter: 2009Q4

REPORT INFORMATION
  Report Type: 
  Country: None (occurrence: None)
  Receive Date: 20091203
  Receipt Date: 20080319
  Transmission Date: 20100525
  Serious: Yes (Hospitalization, Other)
  Sender: FDA-Public Use
  Company Number: JP-ELI_LILLY_AND_COMPANY-JP200710005427

PATIENT
  Sex: Male
  Weight: 57.5 kg

DRUGS (8)
  1. PEMETREXED [Suspect]
     Indication: PLEURAL MESOTHELIOMA MALIGNANT RECURRENT
     Dosage: 790 MG, OTHER
     Route: 042
     Dates: start: 20070926, end: 20070926
  2. CISPLATIN [Suspect]
     Indication: PLEURAL MESOTHELIOMA MALIGNANT RECURRENT
     Dosage: 110 MG, OTHER
     Route: 042
     Dates: start: 20070926, end: 20070926
  3. PANVITAN [Concomitant]
     Dosage: 1 G, DAILY (1/D)
     Route: 048
     Dates: start: 20070919, end: 20071018
  4. METHYCOBAL [Concomitant]
     Dosage: 1 MG, DAILY (1/D)
     Route: 030
     Dates: start: 20070918, end: 20070918
  5. LOXONIN [Concomitant]
     Indication: CANCER PAIN
     Dosage: 2 D/F, UNK
     Route: 048
     Dates: start: 20071002, end: 20071006
  6. LOXONIN [Concomitant]
     Dosage: 3 D/F, UNK
     Route: 048
     Dates: start: 20071007, end: 20071016
  7. MUCOSTA [Concomitant]
     Indication: PROPHYLAXIS
     Dosage: 2 D/F, UNK
     Route: 048
     Dates: start: 20071002, end: 20071006
  8. MUCOSTA [Concomitant]
     Dosage: 3 D/F, UNK
     Route: 048
     Dates: start: 20071007, end: 20071016

REACTIONS (4)
  - FEBRILE NEUTROPENIA [None]
  - HEPATIC FUNCTION ABNORMAL [None]
  - PLATELET COUNT DECREASED [None]
  - WHITE BLOOD CELL COUNT DECREASED [None]
